FAERS Safety Report 9686706 (Version 2)
Quarter: 2013Q4

REPORT INFORMATION
  Report Type: Spontaneous
  Country: JP (occurrence: JP)
  Receive Date: 20131113
  Receipt Date: 20131113
  Transmission Date: 20140711
  Serious: Yes (Hospitalization)
  Sender: FDA-Public Use
  Company Number: US-ASTRAZENECA-2013SE74051

PATIENT
  Age: 84 Year
  Sex: Male
  Weight: 53 kg

DRUGS (3)
  1. BLOPRESS TABLETS 8 [Suspect]
     Indication: HYPERTENSION
     Route: 048
     Dates: end: 20130620
  2. BLOPRESS TABLETS 8 [Suspect]
     Indication: HYPERTENSION
     Route: 048
     Dates: start: 20130920, end: 20130920
  3. AMLODIPINE [Suspect]
     Route: 048
     Dates: end: 20130620

REACTIONS (1)
  - Erythema [Recovering/Resolving]
